APPROVED DRUG PRODUCT: QUINAPRIL HYDROCHLORIDE AND HYDROCHLOROTHIAZIDE
Active Ingredient: HYDROCHLOROTHIAZIDE; QUINAPRIL HYDROCHLORIDE
Strength: 12.5MG;EQ 20MG BASE
Dosage Form/Route: TABLET;ORAL
Application: A091524 | Product #002
Applicant: APOTEX INC
Approved: Mar 12, 2013 | RLD: No | RS: No | Type: DISCN